FAERS Safety Report 25859008 (Version 1)
Quarter: 2025Q3

REPORT INFORMATION
  Report Type: Spontaneous
  Country: US (occurrence: US)
  Receive Date: 20250929
  Receipt Date: 20250929
  Transmission Date: 20251020
  Serious: No
  Sender: MYLAN
  Company Number: US-MYLANLABS-2025M1078337

PATIENT
  Age: 75 Year
  Sex: Male
  Weight: 113.4 kg

DRUGS (12)
  1. ALPRAZOLAM XR [Suspect]
     Active Substance: ALPRAZOLAM
     Indication: Anxiety
     Dosage: 1 MILLIGRAM, QID (FOUR TIMES A DAY)
  2. ALPRAZOLAM XR [Suspect]
     Active Substance: ALPRAZOLAM
     Indication: Depression
     Dosage: 1 MILLIGRAM, QID (FOUR TIMES A DAY)
  3. ALPRAZOLAM XR [Suspect]
     Active Substance: ALPRAZOLAM
     Dosage: 1 MILLIGRAM, QID (FOUR TIMES A DAY)
     Route: 065
  4. ALPRAZOLAM XR [Suspect]
     Active Substance: ALPRAZOLAM
     Dosage: 1 MILLIGRAM, QID (FOUR TIMES A DAY)
     Route: 065
  5. ALPRAZOLAM XR [Suspect]
     Active Substance: ALPRAZOLAM
     Dosage: 2 DOSAGE FORM, BID (MORNING AND NIGHT)
  6. ALPRAZOLAM XR [Suspect]
     Active Substance: ALPRAZOLAM
     Dosage: 2 DOSAGE FORM, BID (MORNING AND NIGHT)
  7. ALPRAZOLAM XR [Suspect]
     Active Substance: ALPRAZOLAM
     Dosage: 2 DOSAGE FORM, BID (MORNING AND NIGHT)
     Route: 048
  8. ALPRAZOLAM XR [Suspect]
     Active Substance: ALPRAZOLAM
     Dosage: 2 DOSAGE FORM, BID (MORNING AND NIGHT)
     Route: 048
  9. EFFIENT [Concomitant]
     Active Substance: PRASUGREL HYDROCHLORIDE
     Indication: Anticoagulant therapy
  10. EFFIENT [Concomitant]
     Active Substance: PRASUGREL HYDROCHLORIDE
     Route: 065
  11. EFFIENT [Concomitant]
     Active Substance: PRASUGREL HYDROCHLORIDE
     Route: 065
  12. EFFIENT [Concomitant]
     Active Substance: PRASUGREL HYDROCHLORIDE

REACTIONS (11)
  - Palpitations [Unknown]
  - Pain [Unknown]
  - Pruritus [Unknown]
  - Cerebral disorder [Unknown]
  - Drug ineffective [Unknown]
  - Vision blurred [Unknown]
  - Headache [Unknown]
  - Insomnia [Unknown]
  - Asthenia [Unknown]
  - Withdrawal syndrome [Unknown]
  - Off label use [Unknown]

NARRATIVE: CASE EVENT DATE: 20250701
